FAERS Safety Report 9166118 (Version 1)
Quarter: 2013Q1

REPORT INFORMATION
  Report Type: Spontaneous
  Country: US (occurrence: US)
  Receive Date: 20130315
  Receipt Date: 20130315
  Transmission Date: 20140127
  Serious: No
  Sender: FDA-Public Use
  Company Number: US-009507513-1303USA004495

PATIENT
  Sex: Male

DRUGS (3)
  1. VICTRELIS [Suspect]
     Indication: HEPATITIS C
     Dosage: 800 MG, TID
     Route: 048
  2. PEGINTRON [Suspect]
     Dosage: 120 MICROGRAM, QW
  3. RIBAPAK [Suspect]
     Dosage: UNK

REACTIONS (1)
  - Drug ineffective [Unknown]
